FAERS Safety Report 9491067 (Version 1)
Quarter: 2013Q3

REPORT INFORMATION
  Report Type: Spontaneous
  Country: BR (occurrence: BR)
  Receive Date: 20130830
  Receipt Date: 20130830
  Transmission Date: 20140515
  Serious: Yes (Hospitalization, Other)
  Sender: FDA-Public Use
  Company Number: BR-PFIZER INC-2013249225

PATIENT
  Age: 73 Year
  Sex: Male

DRUGS (5)
  1. FRONTAL [Suspect]
     Indication: SLEEP DISORDER
     Dosage: 0.5 MG (ONE TABLET), ONCE DAILY
     Route: 048
     Dates: start: 20070827
  2. CARDURAN XL [Suspect]
     Dosage: UNK
     Dates: start: 2008
  3. NEURONTIN [Suspect]
     Indication: PAIN
     Route: 048
  4. NEURONTIN [Suspect]
     Indication: MOVEMENT DISORDER
  5. GABAPENTIN [Concomitant]
     Indication: PAIN

REACTIONS (3)
  - Cerebrovascular accident [Unknown]
  - Drug ineffective [Unknown]
  - Off label use [Not Recovered/Not Resolved]
